FAERS Safety Report 7830430-7 (Version None)
Quarter: 2011Q4

REPORT INFORMATION
  Report Type: 
  Country: None (occurrence: None)
  Receive Date: 20111021
  Receipt Date: 20111014
  Transmission Date: 20120403
  Serious: Yes (Hospitalization, Other)
  Sender: FDA-Public Use
  Company Number: US-ACTELION-A-US2011-54041

PATIENT

DRUGS (18)
  1. POTASSIUM CHLORIDE [Concomitant]
  2. TRACLEER [Suspect]
     Dosage: 62.5
     Route: 048
     Dates: start: 20110826, end: 20110909
  3. MYCOPHENOLATE MOFETIL (CELLCEPT) [Concomitant]
  4. OXYCONTIN [Concomitant]
  5. ROCALTROL [Concomitant]
  6. VITAMIN B6 [Concomitant]
  7. NEXIUM [Concomitant]
  8. VITAMIN D [Concomitant]
  9. DISALCID [Suspect]
  10. LISINOPRIL [Suspect]
  11. COUMADIN [Concomitant]
  12. IRON [Concomitant]
  13. SYNTHROID [Concomitant]
  14. LANTUS [Concomitant]
  15. TRACLEER [Suspect]
     Indication: PULMONARY ARTERIAL HYPERTENSION
     Dosage: 125
     Route: 048
     Dates: start: 20020112, end: 20110825
  16. TRACLEER [Suspect]
     Dosage: 125
     Route: 048
     Dates: start: 20110910
  17. REVATIO [Concomitant]
  18. LASIX [Concomitant]

REACTIONS (6)
  - TRANSAMINASES INCREASED [None]
  - ASPARTATE AMINOTRANSFERASE INCREASED [None]
  - BLOOD CREATININE INCREASED [None]
  - DEHYDRATION [None]
  - DYSPNOEA [None]
  - ALANINE AMINOTRANSFERASE INCREASED [None]
